FAERS Safety Report 8381276-5 (Version None)
Quarter: 2012Q2

REPORT INFORMATION
  Report Type: 
  Country: None (occurrence: None)
  Receive Date: 20120523
  Receipt Date: 20120515
  Transmission Date: 20120825
  Serious: Yes (Hospitalization)
  Sender: FDA-Public Use
  Company Number: US-MYLANLABS-2012S1009927

PATIENT
  Age: 59 Year
  Sex: Male

DRUGS (8)
  1. SYNTHROID [Concomitant]
     Indication: THYROIDECTOMY
     Route: 048
  2. AMBIEN [Concomitant]
     Indication: INSOMNIA
     Route: 048
  3. METFORMIN HCL [Concomitant]
     Indication: DIABETES MELLITUS
     Route: 048
     Dates: start: 20100101
  4. ANDROGEL [Concomitant]
     Indication: BLOOD TESTOSTERONE DECREASED
     Route: 048
     Dates: start: 20100101
  5. EMSAM [Suspect]
     Dosage: QD
     Route: 062
     Dates: start: 20120408
  6. EMSAM [Suspect]
     Indication: DEPRESSION
     Dosage: QD
     Route: 062
     Dates: start: 20111226, end: 20120407
  7. PERCOCET [Concomitant]
     Indication: ABDOMINAL PAIN UPPER
     Route: 048
     Dates: start: 20120401
  8. CRESTOR [Concomitant]
     Indication: BLOOD CHOLESTEROL
     Route: 048
     Dates: start: 20030101

REACTIONS (5)
  - WEIGHT DECREASED [None]
  - DRY MOUTH [None]
  - ABDOMINAL PAIN UPPER [None]
  - BURNING MOUTH SYNDROME [None]
  - CHOLECYSTECTOMY [None]
